FAERS Safety Report 8333227 (Version 4)
Quarter: 2013Q4

REPORT INFORMATION
  Report Type: Spontaneous
  Country: NL (occurrence: NL)
  Receive Date: 20120112
  Receipt Date: 20131211
  Transmission Date: 20140711
  Serious: Yes (Death)
  Sender: FDA-Public Use
  Company Number: NL-JNJFOC-20120103480

PATIENT
  Age: 19 Year
  Sex: Female
  Weight: 73 kg

DRUGS (5)
  1. RISPERDAL [Suspect]
     Indication: PSYCHOTIC DISORDER
     Route: 048
  2. RISPERDAL [Suspect]
     Indication: PSYCHOTIC DISORDER
     Route: 048
  3. RISPERDAL [Suspect]
     Indication: PSYCHOTIC DISORDER
     Route: 048
     Dates: start: 20111121
  4. YASMIN [Suspect]
     Indication: CONTRACEPTION
     Route: 048
     Dates: start: 20100622
  5. LORAZEPAM [Concomitant]
     Route: 048
     Dates: start: 20111123

REACTIONS (4)
  - Embolism [Fatal]
  - Pulmonary embolism [Fatal]
  - Extrapyramidal disorder [Unknown]
  - Suicidal ideation [Unknown]
